FAERS Safety Report 8889024 (Version 4)
Quarter: 2013Q1

REPORT INFORMATION
  Report Type: Spontaneous
  Country: US (occurrence: US)
  Receive Date: 20121106
  Receipt Date: 20130207
  Transmission Date: 20140127
  Serious: Yes (Hospitalization, Other)
  Sender: FDA-Public Use
  Company Number: US-009507513-1202USA00891

PATIENT
  Sex: Female

DRUGS (10)
  1. FOSAMAX [Suspect]
     Indication: OSTEOPENIA
     Dosage: 70 MG, QW
     Route: 048
     Dates: start: 200402, end: 200511
  2. FOSAMAX PLUS D [Suspect]
     Indication: OSTEOPENIA
     Dosage: 70 MG, QW
     Route: 048
     Dates: start: 200511, end: 200812
  3. FOSAMAX PLUS D [Suspect]
     Dosage: 70 MG, QW
     Route: 048
     Dates: start: 200912, end: 201005
  4. FOSAMAX [Suspect]
     Indication: OSTEOPENIA
     Dosage: 70 MG, QW
     Route: 048
     Dates: start: 200812, end: 200912
  5. CALCIUM (UNSPECIFIED) [Concomitant]
     Dosage: 500-600 MG
     Route: 048
     Dates: start: 1990
  6. VITAMINS (UNSPECIFIED) [Concomitant]
     Dosage: UNK
     Dates: start: 1990
  7. TOPROL XL TABLETS [Concomitant]
     Indication: HYPERTENSION
     Dosage: UNK
     Route: 048
     Dates: start: 2001, end: 2005
  8. TRIAMTERENE [Concomitant]
     Indication: HYPERTENSION
     Dosage: UNK
     Route: 048
     Dates: start: 2001
  9. LIPITOR [Concomitant]
     Indication: HYPERLIPIDAEMIA
     Dosage: UNK
     Route: 048
     Dates: start: 2001
  10. PREMPRO [Concomitant]
     Indication: MENOPAUSE
     Dosage: UNK
     Dates: start: 2001, end: 2005

REACTIONS (19)
  - Femur fracture [Recovering/Resolving]
  - Fibula fracture [Recovering/Resolving]
  - Closed fracture manipulation [Unknown]
  - Sepsis [Unknown]
  - Bone graft [Unknown]
  - Urinary tract infection [Recovering/Resolving]
  - Adenotonsillectomy [Unknown]
  - Appendicectomy [Unknown]
  - Haemorrhagic anaemia [Unknown]
  - Open reduction of fracture [Unknown]
  - Fall [Unknown]
  - Escherichia infection [Recovering/Resolving]
  - Medical device removal [Recovering/Resolving]
  - Back disorder [Unknown]
  - Haematoma [Unknown]
  - Road traffic accident [Unknown]
  - Fracture delayed union [Recovering/Resolving]
  - Joint injury [Unknown]
  - Myalgia [Unknown]
